FAERS Safety Report 4286431-1 (Version None)
Quarter: 2004Q1

REPORT INFORMATION
  Report Type: 
  Country: None (occurrence: None)
  Receive Date: 20040205
  Receipt Date: 20040205
  Transmission Date: 20041129
  Serious: Yes (Hospitalization)
  Sender: FDA-Public Use
  Company Number: None

PATIENT
  Age: 80 Year
  Sex: Male
  Weight: 94.3482 kg

DRUGS (2)
  1. CARBOPLATIN [Suspect]
     Indication: NON-SMALL CELL LUNG CANCER
     Dosage: 482 MG IV ON DAY 1
     Route: 042
     Dates: start: 20040114
  2. ETOPOSIDE [Suspect]
     Indication: NON-SMALL CELL LUNG CANCER
     Dosage: 262 MG IV ON DAYS 1-3
     Route: 042
     Dates: start: 20040114, end: 20040116

REACTIONS (6)
  - ANAEMIA [None]
  - DYSPNOEA [None]
  - ESCHERICHIA BACTERAEMIA [None]
  - GENERAL PHYSICAL HEALTH DETERIORATION [None]
  - PRODUCTIVE COUGH [None]
  - THROMBOCYTOPENIA [None]
